FAERS Safety Report 25599836 (Version 1)
Quarter: 2025Q3

REPORT INFORMATION
  Report Type: Spontaneous
  Country: EU (occurrence: EU)
  Receive Date: 20250724
  Receipt Date: 20250724
  Transmission Date: 20251020
  Serious: Yes (Death, Other)
  Sender: HIKMA
  Company Number: EU-HIKMA PHARMACEUTICALS USA INC.-IT-H14001-25-08726

PATIENT

DRUGS (1)
  1. METHYLPREDNISOLONE [Suspect]
     Active Substance: METHYLPREDNISOLONE
     Indication: Multisystem inflammatory syndrome in children
     Dosage: 2 MILLIGRAM/KILOGRAM, QD
     Route: 042

REACTIONS (1)
  - Disease progression [Fatal]
